FAERS Safety Report 22154186 (Version 1)
Quarter: 2023Q1

REPORT INFORMATION
  Report Type: Spontaneous
  Country: US (occurrence: US)
  Receive Date: 20230330
  Receipt Date: 20230330
  Transmission Date: 20230418
  Serious: Yes (Other)
  Sender: FDA-Public Use
  Company Number: US-BRISTOL-MYERS SQUIBB COMPANY-2023-043087

PATIENT
  Age: 34 Year
  Sex: Female

DRUGS (1)
  1. DASATINIB [Suspect]
     Active Substance: DASATINIB
     Indication: Acute lymphocytic leukaemia
     Dosage: DOSE : UNAVAILABLE (NOT PROVIDED IN E;     FREQ : UNAVAILABLE (NOT PROVIDED IN EMAIL OR AE FORM)

REACTIONS (1)
  - Drug ineffective [Unknown]
